FAERS Safety Report 7928234-X (Version None)
Quarter: 2011Q4

REPORT INFORMATION
  Report Type: 
  Country: None (occurrence: None)
  Receive Date: 20111118
  Receipt Date: 20111109
  Transmission Date: 20120403
  Serious: Yes (Other)
  Sender: FDA-Public Use
  Company Number: DK-ROCHE-1014041

PATIENT

DRUGS (1)
  1. ALTEPLASE [Suspect]
     Indication: ISCHAEMIC STROKE
     Route: 042

REACTIONS (3)
  - NEUROLOGICAL DECOMPENSATION [None]
  - HAEMORRHAGIC TRANSFORMATION STROKE [None]
  - CEREBRAL HAEMATOMA [None]
